FAERS Safety Report 14012228 (Version 14)
Quarter: 2018Q3

REPORT INFORMATION
  Report Type: Spontaneous
  Country: FR (occurrence: FR)
  Receive Date: 20170926
  Receipt Date: 20180702
  Transmission Date: 20181010
  Serious: Yes (Hospitalization, Other)
  Sender: FDA-Public Use
  Company Number: FR-PFIZER INC-2017413522

PATIENT
  Age: 79 Year
  Sex: Male

DRUGS (13)
  1. RAMIPRIL. [Suspect]
     Active Substance: RAMIPRIL
     Dosage: 2.5 MG, ONCE DAILY
     Route: 048
     Dates: end: 20170823
  2. CLOPIDOGREL [Suspect]
     Active Substance: CLOPIDOGREL BISULFATE
     Dosage: 75 MG, ONCE DAILY
     Route: 048
  3. VESICARE [Suspect]
     Active Substance: SOLIFENACIN SUCCINATE
     Dosage: 5 MG, ONCE DAILY
     Route: 048
  4. RAMIPRIL. [Suspect]
     Active Substance: RAMIPRIL
     Dosage: 5 MG, ONCE DAILY
     Route: 048
     Dates: end: 20170823
  5. HYDROCHLOROTHIAZIDE. [Suspect]
     Active Substance: HYDROCHLOROTHIAZIDE
     Dosage: 75 MG, 1X/DAY
     Route: 065
     Dates: end: 20170823
  6. CETIRIZINE [Suspect]
     Active Substance: CETIRIZINE HYDROCHLORIDE
     Dosage: 5 MG, ONCE DAILY
     Route: 048
  7. MACROGOL [Concomitant]
     Active Substance: POLYETHYLENE GLYCOLS
     Dosage: UNK
  8. SORBIC ACID [Concomitant]
     Active Substance: SORBIC ACID
     Indication: ANTIFUNGAL TREATMENT
     Dosage: UNK
     Route: 061
  9. UROREC [Suspect]
     Active Substance: SILODOSIN
     Dosage: 4 MG, DAILY
     Route: 048
  10. CRESTOR [Concomitant]
     Active Substance: ROSUVASTATIN CALCIUM
     Dosage: UNK
  11. SODIUM LAURYL SULFATE [Suspect]
     Active Substance: SODIUM LAURYL SULFATE
     Dosage: 4 MG, DAILY
     Route: 065
  12. PARACETAMOL [Concomitant]
     Active Substance: ACETAMINOPHEN
     Dosage: UNK
  13. SODIUM CITRATE. [Concomitant]
     Active Substance: SODIUM CITRATE
     Dosage: UNK

REACTIONS (4)
  - Fall [Unknown]
  - Acute kidney injury [Unknown]
  - Foot fracture [Unknown]
  - Hyponatraemia [Unknown]

NARRATIVE: CASE EVENT DATE: 20170823
